FAERS Safety Report 24268427 (Version 2)
Quarter: 2024Q3

REPORT INFORMATION
  Report Type: Report from Study
  Country: US (occurrence: US)
  Receive Date: 20240830
  Receipt Date: 20240903
  Transmission Date: 20241016
  Serious: Yes (Other)
  Sender: NOVARTIS
  Company Number: US-002147023-NVSC2024US019137

PATIENT
  Sex: Male

DRUGS (2)
  1. TASIGNA [Suspect]
     Active Substance: NILOTINIB
     Indication: Product used for unknown indication
     Dosage: UNK
     Route: 065
  2. GLEEVEC [Suspect]
     Active Substance: IMATINIB MESYLATE
     Indication: Product used for unknown indication
     Dosage: UNK
     Route: 065

REACTIONS (10)
  - Neoplasm malignant [Unknown]
  - Myocardial infarction [Unknown]
  - Abdominal pain upper [Unknown]
  - Pain in extremity [Unknown]
  - General physical health deterioration [Unknown]
  - Gait disturbance [Unknown]
  - Peroneal nerve palsy [Unknown]
  - Gastrointestinal disorder [Unknown]
  - Illness [Unknown]
  - Drug resistance [Unknown]
